FAERS Safety Report 7535429 (Version 4)
Quarter: 2016Q4

REPORT INFORMATION
  Report Type: Spontaneous
  Country: DK (occurrence: DK)
  Receive Date: 20100810
  Receipt Date: 20161124
  Transmission Date: 20170207
  Serious: Yes (Death, Other)
  Sender: FDA-Public Use
  Company Number: DK-ELI_LILLY_AND_COMPANY-DK201007006904

PATIENT
  Sex: Male
  Weight: 67 kg

DRUGS (4)
  1. ZYPREXA [Interacting]
     Active Substance: OLANZAPINE
     Dosage: 5 MG, PRN
     Dates: start: 200606
  2. ABILIFY [Interacting]
     Active Substance: ARIPIPRAZOLE
     Indication: SCHIZOPHRENIA
     Dosage: 15 MG, BID
     Route: 048
     Dates: start: 20091104
  3. MIRTAZAPINE. [Interacting]
     Active Substance: MIRTAZAPINE
     Indication: DEPRESSION
     Dosage: 30 MG, QD
     Route: 048
     Dates: start: 20091104
  4. ZYPREXA [Suspect]
     Active Substance: OLANZAPINE
     Indication: SCHIZOPHRENIA
     Dosage: 20 MG, QD
     Route: 048
     Dates: start: 20060615

REACTIONS (9)
  - Drug interaction [Unknown]
  - Myocardial necrosis [Fatal]
  - Prescribed overdose [Unknown]
  - Toxicity to various agents [Fatal]
  - Myocardial fibrosis [Fatal]
  - Eosinophilic myocarditis [Fatal]
  - Electrocardiogram QT prolonged [Unknown]
  - Arrhythmia [Fatal]
  - Seizure [Fatal]
